FAERS Safety Report 6268355-3 (Version None)
Quarter: 2009Q3

REPORT INFORMATION
  Report Type: 
  Country: None (occurrence: None)
  Receive Date: 20090715
  Receipt Date: 20090709
  Transmission Date: 20100115
  Serious: Yes (Hospitalization, Other)
  Sender: FDA-Public Use
  Company Number: CA-ASTRAZENECA-2009UW13863

PATIENT
  Age: 22239 Day
  Sex: Male

DRUGS (6)
  1. CRESTOR [Suspect]
     Indication: CORONARY ARTERY DISEASE
     Route: 048
     Dates: start: 20090512
  2. ASPIRIN [Concomitant]
  3. LIPITOR [Concomitant]
  4. METOPROLOL TARTRATE [Concomitant]
  5. PLAVIX [Concomitant]
  6. NITRO-SPRAY [Concomitant]
     Dosage: PRN

REACTIONS (1)
  - BLADDER OBSTRUCTION [None]
